FAERS Safety Report 6833871-X (Version None)
Quarter: 2010Q3

REPORT INFORMATION
  Report Type: 
  Country: None (occurrence: None)
  Receive Date: 20100712
  Receipt Date: 20070404
  Transmission Date: 20110219
  Serious: No
  Sender: FDA-Public Use
  Company Number: US-PFIZER INC-2007028604

PATIENT
  Sex: Female
  Weight: 72.57 kg

DRUGS (2)
  1. CHANTIX [Suspect]
     Indication: SMOKING CESSATION THERAPY
     Dates: start: 20070404
  2. ELAVIL [Concomitant]

REACTIONS (3)
  - INCORRECT DOSE ADMINISTERED [None]
  - NAUSEA [None]
  - VOMITING [None]
